FAERS Safety Report 4392614-2 (Version None)
Quarter: 2004Q3

REPORT INFORMATION
  Report Type: 
  Country: None (occurrence: None)
  Receive Date: 20040702
  Receipt Date: 20040618
  Transmission Date: 20050211
  Serious: Yes (Death, Congenital Anomaly)
  Sender: FDA-Public Use
  Company Number: 2004-UK-00563UK

PATIENT

DRUGS (3)
  1. NEVIRAPINE                    (NEVIRAPINE) [Suspect]
     Indication: PROPHYLAXIS AGAINST HIV INFECTION
     Dosage: 400 MG, IU
     Route: 064
  2. NELFINAVIR [Concomitant]
  3. DIDANOSINE [Concomitant]

REACTIONS (4)
  - DRUG EXPOSURE DURING PREGNANCY [None]
  - HEART DISEASE CONGENITAL [None]
  - HYPOPLASTIC LEFT HEART SYNDROME [None]
  - PULMONARY ARTERY ATRESIA [None]
